FAERS Safety Report 8843600 (Version 1)
Quarter: 2012Q4

REPORT INFORMATION
  Report Type: 
  Country: GB (occurrence: GB)
  Receive Date: 20121016
  Receipt Date: 20121016
  Transmission Date: 20130627
  Serious: Yes (Other)
  Sender: FDA-Public Use
  Company Number: GB-ABBOTT-12P-167-0994787-00

PATIENT
  Age: 50 Year
  Sex: Female

DRUGS (3)
  1. EPILIM CHRONO [Suspect]
     Indication: EPILEPSY
     Route: 048
  2. DOXAZOSIN MESILATE [Suspect]
     Indication: BLOOD PRESSURE
  3. CITALOPRAM [Concomitant]
     Indication: PRODUCT USED FOR UNKNOWN INDICATION

REACTIONS (2)
  - Drug interaction [Unknown]
  - Epilepsy [Unknown]
